FAERS Safety Report 8896469 (Version 1)
Quarter: 2012Q4

REPORT INFORMATION
  Report Type: Spontaneous
  Country: US (occurrence: None)
  Receive Date: 20121107
  Receipt Date: 20121107
  Transmission Date: 20130627
  Serious: Yes (Death)
  Sender: FDA-Public Use
  Company Number: None

PATIENT
  Age: 73 Year
  Sex: Male
  Weight: 70.31 kg

DRUGS (1)
  1. GENTAMYCIN [Suspect]
     Indication: ANTIBIOTIC THERAPY
     Dosage: 10 doses 1 dose per day  
10 doses end of November

REACTIONS (1)
  - Renal failure [None]
